FAERS Safety Report 4651620-0 (Version None)
Quarter: 2005Q2

REPORT INFORMATION
  Report Type: 
  Country: None (occurrence: None)
  Receive Date: 20050502
  Receipt Date: 20050421
  Transmission Date: 20051028
  Serious: No
  Sender: FDA-Public Use
  Company Number: S05-USA-02150-01

PATIENT
  Age: 67 Year
  Sex: Female

DRUGS (1)
  1. THYROLAR-1 [Suspect]
     Indication: HYPOTHYROIDISM
     Dosage: 2 TABLET QD PO
     Route: 048
     Dates: start: 19950101, end: 20040601

REACTIONS (5)
  - CATARACT [None]
  - CORNEAL DISORDER [None]
  - GLAUCOMA [None]
  - POST PROCEDURAL COMPLICATION [None]
  - RETINAL TEAR [None]
